FAERS Safety Report 5616489-6 (Version None)
Quarter: 2008Q1

REPORT INFORMATION
  Report Type: 
  Country: None (occurrence: None)
  Receive Date: 20080204
  Receipt Date: 20080118
  Transmission Date: 20080703
  Serious: Yes (Other)
  Sender: FDA-Public Use
  Company Number: 6039764

PATIENT
  Sex: Female

DRUGS (2)
  1. BISOPROLOL FUMARATE [Suspect]
     Indication: DRUG USE FOR UNKNOWN INDICATION
     Dosage: 5 MG IN THE MORNING, 2.5 MG AT NIGHT; FEW YEARS
     Route: 048
  2. WARFARIN SODIUM [Concomitant]

REACTIONS (2)
  - NEURITIS [None]
  - PERIPHERAL MOTOR NEUROPATHY [None]
